FAERS Safety Report 5958087-0 (Version None)
Quarter: 2008Q4

REPORT INFORMATION
  Report Type: 
  Country: None (occurrence: None)
  Receive Date: 20081119
  Receipt Date: 20081117
  Transmission Date: 20090506
  Serious: Yes (Hospitalization)
  Sender: FDA-Public Use
  Company Number: B0545342A

PATIENT
  Age: 31 Year
  Sex: Female

DRUGS (3)
  1. SAWACILLIN [Suspect]
     Indication: SINUSITIS
     Dosage: 250MG THREE TIMES PER DAY
     Route: 048
     Dates: start: 20081008, end: 20081008
  2. DASEN [Suspect]
     Indication: SINUSITIS
     Dosage: 10MG THREE TIMES PER DAY
     Route: 048
     Dates: start: 20081008, end: 20081008
  3. MUCODYNE [Concomitant]
     Indication: ACUTE SINUSITIS
     Dosage: 500MG THREE TIMES PER DAY
     Route: 065
     Dates: start: 20081008, end: 20081008

REACTIONS (4)
  - ACUTE GENERALISED EXANTHEMATOUS PUSTULOSIS [None]
  - DRUG ERUPTION [None]
  - GENERALISED ERYTHEMA [None]
  - PYREXIA [None]
